FAERS Safety Report 7749541-X (Version None)
Quarter: 2011Q3

REPORT INFORMATION
  Report Type: 
  Country: None (occurrence: None)
  Receive Date: 20110914
  Receipt Date: 20110902
  Transmission Date: 20111222
  Serious: Yes (Hospitalization)
  Sender: FDA-Public Use
  Company Number: JP-ELI_LILLY_AND_COMPANY-JP201104006934

PATIENT
  Sex: Female

DRUGS (1)
  1. FORTEO [Suspect]
     Dosage: UNK
     Route: 058

REACTIONS (9)
  - GASTRIC ULCER [None]
  - CHOLECYSTITIS [None]
  - FRACTURE [None]
  - SALIVARY HYPERSECRETION [None]
  - ABDOMINAL DISCOMFORT [None]
  - DECREASED APPETITE [None]
  - ABDOMINAL DISTENSION [None]
  - NAUSEA [None]
  - FEELING ABNORMAL [None]
